FAERS Safety Report 8286681-3 (Version None)
Quarter: 2012Q2

REPORT INFORMATION
  Report Type: 
  Country: None (occurrence: None)
  Receive Date: 20120416
  Receipt Date: 20120413
  Transmission Date: 20120825
  Serious: Yes (Death)
  Sender: FDA-Public Use
  Company Number: SE-JNJFOC-20120311695

PATIENT

DRUGS (36)
  1. DOXORUBICIN HCL [Suspect]
     Indication: DIFFUSE LARGE B-CELL LYMPHOMA
     Route: 042
  2. DOXORUBICIN HCL [Suspect]
     Route: 042
  3. CYCLOPHOSPHAMIDE [Suspect]
     Route: 065
  4. CYCLOPHOSPHAMIDE [Suspect]
     Route: 065
  5. PREDNISONE TAB [Suspect]
     Route: 065
  6. PREDNISONE TAB [Suspect]
     Route: 065
  7. MITOXANTRONE [Suspect]
     Route: 065
  8. DOXORUBICIN HCL [Suspect]
     Route: 042
  9. DOXORUBICIN HCL [Suspect]
     Route: 042
  10. CYCLOPHOSPHAMIDE [Suspect]
     Route: 065
  11. VINCRISTINE [Suspect]
     Indication: DIFFUSE LARGE B-CELL LYMPHOMA
     Route: 065
  12. DOXORUBICIN HCL [Suspect]
     Route: 042
  13. DOXORUBICIN HCL [Suspect]
     Route: 042
  14. VINCRISTINE [Suspect]
     Route: 065
  15. PREDNISONE TAB [Suspect]
     Route: 065
  16. PREDNISONE TAB [Suspect]
     Route: 065
  17. PREDNISONE TAB [Suspect]
     Route: 065
  18. MITOXANTRONE [Suspect]
     Route: 065
  19. MITOXANTRONE [Suspect]
     Route: 065
  20. CYCLOPHOSPHAMIDE [Suspect]
     Route: 065
  21. MITOXANTRONE [Suspect]
     Route: 065
  22. DOXORUBICIN HCL [Suspect]
     Route: 042
  23. DOXORUBICIN HCL [Suspect]
     Route: 042
  24. CYCLOPHOSPHAMIDE [Suspect]
     Route: 065
  25. VINCRISTINE [Suspect]
     Route: 065
  26. VINCRISTINE [Suspect]
     Route: 065
  27. VINCRISTINE [Suspect]
     Route: 065
  28. PREDNISONE TAB [Suspect]
     Indication: DIFFUSE LARGE B-CELL LYMPHOMA
     Route: 065
  29. MITOXANTRONE [Suspect]
     Indication: DIFFUSE LARGE B-CELL LYMPHOMA
     Route: 065
  30. DOXORUBICIN HCL [Suspect]
     Route: 042
  31. DOXORUBICIN HCL [Suspect]
     Route: 042
  32. MITOXANTRONE [Suspect]
     Route: 065
  33. DOXORUBICIN HCL [Suspect]
     Route: 042
  34. DOXORUBICIN HCL [Suspect]
     Route: 042
  35. CYCLOPHOSPHAMIDE [Suspect]
     Indication: DIFFUSE LARGE B-CELL LYMPHOMA
     Route: 065
  36. VINCRISTINE [Suspect]
     Route: 065

REACTIONS (1)
  - CARDIAC FAILURE [None]
